FAERS Safety Report 8344056-2 (Version None)
Quarter: 2012Q2

REPORT INFORMATION
  Report Type: 
  Country: None (occurrence: None)
  Receive Date: 20120508
  Receipt Date: 20120501
  Transmission Date: 20120825
  Serious: Yes (Hospitalization)
  Sender: FDA-Public Use
  Company Number: US-BAYER-2012-043452

PATIENT
  Age: 30 Year
  Sex: Female
  Weight: 91.61 kg

DRUGS (12)
  1. YAZ [Suspect]
  2. PREDNISONE TAB [Concomitant]
  3. DROSPIRENONE AND ETHINYL ESTRADIOL [Suspect]
  4. CORTICOSTEROIDS [Concomitant]
  5. BENICAR [Concomitant]
     Dosage: 20 MG, QD
  6. PROAIR HFA [Concomitant]
  7. DUONEB [Concomitant]
  8. SYMBICORT [Concomitant]
  9. ZITHROMAX [Concomitant]
  10. NEBULIZERS [Concomitant]
  11. PREVACID [Concomitant]
     Dosage: 30 MG, QD
  12. SINGULAIR [Concomitant]

REACTIONS (1)
  - PULMONARY EMBOLISM [None]
